FAERS Safety Report 7770923-4 (Version None)
Quarter: 2011Q3

REPORT INFORMATION
  Report Type: 
  Country: None (occurrence: None)
  Receive Date: 20110922
  Receipt Date: 20110225
  Transmission Date: 20111222
  Serious: No
  Sender: FDA-Public Use
  Company Number: US-ASTRAZENECA-2011SE11078

PATIENT
  Sex: Female

DRUGS (1)
  1. SEROQUEL XR [Suspect]
     Indication: BIPOLAR DISORDER
     Route: 048

REACTIONS (5)
  - DRUG INEFFECTIVE [None]
  - EMOTIONAL DISTRESS [None]
  - ASTHENIA [None]
  - IMPAIRED WORK ABILITY [None]
  - BIPOLAR I DISORDER [None]
